FAERS Safety Report 11571329 (Version 1)
Quarter: 2015Q3

REPORT INFORMATION
  Report Type: Spontaneous
  Country: US (occurrence: US)
  Receive Date: 20150929
  Receipt Date: 20150929
  Transmission Date: 20151125
  Serious: No
  Sender: FDA-Public Use
  Company Number: US-SA-2015SA087533

PATIENT

DRUGS (1)
  1. AUBAGIO [Suspect]
     Active Substance: TERIFLUNOMIDE
     Route: 065
     Dates: start: 201506

REACTIONS (5)
  - Paraesthesia [Unknown]
  - Condition aggravated [Unknown]
  - Hypoaesthesia oral [Unknown]
  - Musculoskeletal stiffness [Unknown]
  - Swelling [Unknown]
